FAERS Safety Report 17955353 (Version 1)
Quarter: 2020Q2

REPORT INFORMATION
  Report Type: Spontaneous
  Country: US (occurrence: US)
  Receive Date: 20200628
  Receipt Date: 20200628
  Transmission Date: 20200714
  Serious: Yes (Disabling)
  Sender: FDA-Public Use
  Company Number: None

PATIENT
  Sex: Female
  Weight: 114.75 kg

DRUGS (1)
  1. METFORMIN HCI EXTENDED RELEASE 500 MG TABLETS [Suspect]
     Active Substance: METFORMIN HYDROCHLORIDE
     Indication: DIABETES MELLITUS
     Dates: start: 20200306, end: 20200308

REACTIONS (6)
  - Eye swelling [None]
  - Urticaria [None]
  - Scratch [None]
  - Pruritus [None]
  - Swelling [None]
  - Rash [None]

NARRATIVE: CASE EVENT DATE: 20200606
